FAERS Safety Report 6139686-2 (Version None)
Quarter: 2009Q1

REPORT INFORMATION
  Report Type: 
  Country: None (occurrence: None)
  Receive Date: 20090330
  Receipt Date: 20080623
  Transmission Date: 20090719
  Serious: Yes (Hospitalization)
  Sender: FDA-Public Use
  Company Number: 2008BH006681

PATIENT
  Sex: Female

DRUGS (4)
  1. REGLAN [Suspect]
     Indication: NAUSEA
     Dosage: IV
     Route: 042
     Dates: start: 20080606
  2. BLOOD PRESSURE MEDICATION [Concomitant]
  3. SUMATRIPTAN SUCCINATE [Concomitant]
  4. FIORINAL [Concomitant]

REACTIONS (1)
  - HEART RATE IRREGULAR [None]
